FAERS Safety Report 10349697 (Version 1)
Quarter: 2014Q3

REPORT INFORMATION
  Report Type: Spontaneous
  Country: IT (occurrence: None)
  Receive Date: 20140728
  Receipt Date: 20140728
  Transmission Date: 20150326
  Serious: Yes (Hospitalization)
  Sender: FDA-Public Use
  Company Number: SYM-2014-23334

PATIENT
  Age: 56 Year
  Sex: Male

DRUGS (3)
  1. DILTIAZEM HYDROCHLORIDE (DILTIAZEM HYDROCHLORIDE) [Suspect]
     Active Substance: DILTIAZEM HYDROCHLORIDE
     Indication: INTENTIONAL SELF-INJURY
     Route: 048
  2. TICLOPIDINE HYDROCHLORIDE. [Suspect]
     Active Substance: TICLOPIDINE HYDROCHLORIDE
     Indication: INTENTIONAL SELF-INJURY
     Route: 048
  3. LASIX [Suspect]
     Active Substance: FUROSEMIDE
     Indication: INTENTIONAL SELF-INJURY
     Route: 048

REACTIONS (7)
  - Self injurious behaviour [None]
  - Dyspnoea [None]
  - Drug abuse [None]
  - Hypotension [None]
  - Bradycardia [None]
  - Blood lactic acid increased [None]
  - Hypokalaemia [None]

NARRATIVE: CASE EVENT DATE: 20140708
